FAERS Safety Report 5871397-0 (Version None)
Quarter: 2008Q3

REPORT INFORMATION
  Report Type: 
  Country: None (occurrence: None)
  Receive Date: 20080905
  Receipt Date: 20080618
  Transmission Date: 20090109
  Serious: No
  Sender: FDA-Public Use
  Company Number: A0655027A

PATIENT
  Age: 73 Year
  Sex: Male

DRUGS (12)
  1. REQUIP [Suspect]
     Indication: PARKINSON'S DISEASE
     Dosage: 3MG THREE TIMES PER DAY
     Route: 048
     Dates: start: 20060501
  2. ROPINIROLE [Suspect]
     Indication: PARKINSON'S DISEASE
     Dosage: 3MG THREE TIMES PER DAY
     Route: 048
  3. SINEMET [Concomitant]
  4. AZILECT [Concomitant]
  5. LEVOTHYROXINE SODIUM [Concomitant]
  6. LOTREL [Concomitant]
  7. FUROSEMIDE [Concomitant]
  8. ASPIRIN [Concomitant]
  9. FINASTERIDE [Concomitant]
  10. TERAZOSIN HCL [Concomitant]
  11. SELEGILINE HCL [Concomitant]
  12. LEVODOPA [Concomitant]

REACTIONS (8)
  - DISTURBANCE IN ATTENTION [None]
  - EYE DISORDER [None]
  - FORMICATION [None]
  - INSOMNIA [None]
  - MENTAL IMPAIRMENT [None]
  - RESTLESS LEGS SYNDROME [None]
  - RESTLESSNESS [None]
  - VISUAL IMPAIRMENT [None]
